FAERS Safety Report 9449688 (Version 1)
Quarter: 2013Q3

REPORT INFORMATION
  Report Type: Spontaneous
  Country: US (occurrence: US)
  Receive Date: 20130809
  Receipt Date: 20130809
  Transmission Date: 20140515
  Serious: Yes (Hospitalization, Disabling, Other)
  Sender: FDA-Public Use
  Company Number: US-ELI_LILLY_AND_COMPANY-US201307011019

PATIENT
  Age: 33 Year
  Sex: Female
  Weight: 55.78 kg

DRUGS (1)
  1. HUMALOG LISPRO [Suspect]
     Dosage: UNK
     Route: 058

REACTIONS (5)
  - Sepsis [Unknown]
  - Renal pain [Unknown]
  - Blindness [Not Recovered/Not Resolved]
  - Hypoglycaemia [Recovered/Resolved]
  - Blood glucose increased [Unknown]
